FAERS Safety Report 23513430 (Version 2)
Quarter: 2024Q1

REPORT INFORMATION
  Report Type: Spontaneous
  Country: TW (occurrence: TW)
  Receive Date: 20240212
  Receipt Date: 20240220
  Transmission Date: 20240409
  Serious: Yes (Death)
  Sender: FDA-Public Use
  Company Number: TW-PFIZER INC-PV202400018589

PATIENT
  Age: 82 Year
  Sex: Female
  Weight: 64.8 kg

DRUGS (7)
  1. DIFLUCAN [Suspect]
     Active Substance: FLUCONAZOLE
     Indication: Infection
     Dosage: UNK, 1X/DAY
     Route: 042
     Dates: start: 20240117, end: 20240123
  2. CEFTRIAXONE SODIUM [Suspect]
     Active Substance: CEFTRIAXONE SODIUM
     Indication: Septic shock
     Dosage: 1 G, 2X/DAY (Q12H; 12 TIMES PER HOUR)
     Dates: start: 20231229, end: 20240123
  3. CEFTRIAXONE SODIUM [Suspect]
     Active Substance: CEFTRIAXONE SODIUM
     Indication: Pneumonia
  4. KEPPRA [Suspect]
     Active Substance: LEVETIRACETAM
     Indication: Seizure
     Dosage: 1 DF, 2X/DAY (1# Q12H; 12 TIMES PER HOUR)
     Dates: start: 20231230, end: 20240126
  5. PANTOPRAZOLE SODIUM [Suspect]
     Active Substance: PANTOPRAZOLE SODIUM
     Indication: Occult blood
     Dosage: 40 MG, QD
     Route: 042
     Dates: start: 20231217, end: 20240123
  6. ACETAL [PARACETAMOL] [Concomitant]
     Indication: Body temperature increased
     Dosage: 500 MG, AS NEEDED (Q8)
     Route: 048
  7. MOLNUPIRAVIR [Concomitant]
     Active Substance: MOLNUPIRAVIR
     Indication: COVID-19
     Dosage: 800 MG, BID

REACTIONS (2)
  - Toxic epidermal necrolysis [Fatal]
  - Septic shock [Fatal]

NARRATIVE: CASE EVENT DATE: 20240101
